FAERS Safety Report 6374690-0 (Version None)
Quarter: 2009Q3

REPORT INFORMATION
  Report Type: 
  Country: None (occurrence: None)
  Receive Date: 20090924
  Receipt Date: 20090918
  Transmission Date: 20100115
  Serious: Yes (Death, Hospitalization)
  Sender: FDA-Public Use
  Company Number: MX-BRISTOL-MYERS SQUIBB COMPANY-14766273

PATIENT
  Age: 58 Year
  Sex: Male
  Weight: 65 kg

DRUGS (2)
  1. ERBITUX [Suspect]
     Indication: LARYNGEAL CANCER STAGE III
     Dosage: 400 MG/M2 ONCE 18FEB09; 25FEB09-14APR09, 500 MG/M2 (142.8571 MG/M2), 2 IN 1 WK (47 D)
     Route: 042
     Dates: start: 20090218, end: 20090218
  2. RADIATION THERAPY [Suspect]
     Indication: LARYNGEAL CANCER STAGE III
     Dates: start: 20090225, end: 20090414

REACTIONS (3)
  - MEDIASTINITIS [None]
  - PNEUMONITIS [None]
  - SEPTIC SHOCK [None]
